FAERS Safety Report 8152152-8 (Version None)
Quarter: 2012Q1

REPORT INFORMATION
  Report Type: 
  Country: None (occurrence: None)
  Receive Date: 20120214
  Receipt Date: 20120203
  Transmission Date: 20120608
  Serious: Yes (Death)
  Sender: FDA-Public Use
  Company Number: 1188616

PATIENT
  Age: 6 Year
  Sex: Female

DRUGS (2)
  1. IDARUBICIN HCL [Suspect]
     Indication: ACUTE MYELOID LEUKAEMIA
     Dosage: 7 MG/M^2/D
  2. CYTARABINE [Suspect]
     Indication: ACUTE MYELOID LEUKAEMIA
     Dosage: 500; MG/M^2, INTRAVENOUS DRIP, 40 MG INTRADERMAL
     Route: 041

REACTIONS (4)
  - H1N1 INFLUENZA [None]
  - ACUTE RESPIRATORY DISTRESS SYNDROME [None]
  - NEUTROPENIA [None]
  - PNEUMONIA [None]
